FAERS Safety Report 10580314 (Version 2)
Quarter: 2014Q4

REPORT INFORMATION
  Report Type: Spontaneous
  Country: US (occurrence: US)
  Receive Date: 20141112
  Receipt Date: 20141210
  Transmission Date: 20150529
  Serious: No
  Sender: FDA-Public Use
  Company Number: US-009507513-1411USA004443

PATIENT

DRUGS (2)
  1. NEXPLANON [Suspect]
     Active Substance: ETONOGESTREL
     Dosage: 1 ROD/THREE YEARS
     Route: 059
     Dates: start: 20141029, end: 20141029
  2. NEXPLANON [Suspect]
     Active Substance: ETONOGESTREL
     Dosage: 1 DF, UNK
     Route: 059
     Dates: start: 20141029

REACTIONS (4)
  - No adverse event [Unknown]
  - Device difficult to use [Recovered/Resolved]
  - Product quality issue [Unknown]
  - Wrong technique in drug usage process [Unknown]

NARRATIVE: CASE EVENT DATE: 20141029
